FAERS Safety Report 8847300 (Version 2)
Quarter: 2012Q4

REPORT INFORMATION
  Report Type: 
  Country: US (occurrence: US)
  Receive Date: 20121018
  Receipt Date: 20121130
  Transmission Date: 20130627
  Serious: No
  Sender: FDA-Public Use
  Company Number: US-PFIZER INC-2012257764

PATIENT
  Age: 82 Year
  Sex: Female
  Weight: 63.95 kg

DRUGS (5)
  1. LYRICA [Suspect]
     Indication: NEUROPATHY PERIPHERAL
     Dosage: 75 mg, daily
     Dates: start: 201208
  2. COUMADINE [Concomitant]
     Indication: ATRIAL FIBRILLATION
     Dosage: 2.5 mg, daily
  3. PROPRANOLOL [Concomitant]
     Indication: HEPATITIS C
     Dosage: 60 mg, 2x/day
  4. CALCIUM WITH VITAMIN D [Concomitant]
     Dosage: UNK
  5. TRIAMTERENE [Concomitant]
     Indication: DIURETIC THERAPY
     Dosage: unknown dose by cutting 25 mg tablet into half daily as water pill
     Dates: start: 2009

REACTIONS (2)
  - Drug ineffective [Unknown]
  - Weight increased [Unknown]
